FAERS Safety Report 21226611 (Version 1)
Quarter: 2022Q3

REPORT INFORMATION
  Report Type: Spontaneous
  Country: US (occurrence: US)
  Receive Date: 20220818
  Receipt Date: 20220818
  Transmission Date: 20221027
  Serious: No
  Sender: FDA-Public Use
  Company Number: US-CIPLA LTD.-2022US00102

PATIENT
  Sex: Female

DRUGS (3)
  1. DICLOFENAC [Suspect]
     Active Substance: DICLOFENAC
     Indication: Back pain
     Dosage: UNK
     Route: 061
     Dates: start: 20211215, end: 20211216
  2. DICLOFENAC [Suspect]
     Active Substance: DICLOFENAC
     Indication: Arthralgia
  3. IBUFENAC [Concomitant]
     Indication: Leukaemia
     Dosage: UNK
     Route: 065

REACTIONS (4)
  - Off label use [Unknown]
  - Product use in unapproved indication [Unknown]
  - Pruritus [Unknown]
  - Rash [Unknown]

NARRATIVE: CASE EVENT DATE: 20211215
